FAERS Safety Report 5046802-2 (Version None)
Quarter: 2006Q3

REPORT INFORMATION
  Report Type: 
  Country: None (occurrence: None)
  Receive Date: 20060705
  Receipt Date: 20060705
  Transmission Date: 20061208
  Serious: Yes (Disabling)
  Sender: FDA-Public Use
  Company Number: None

PATIENT
  Age: 85 Year
  Sex: Female
  Weight: 51 kg

DRUGS (47)
  1. TRASYLOL [Suspect]
     Indication: CORONARY ARTERY BYPASS
     Dosage: 200 ML IV PRN
     Route: 042
     Dates: start: 20060512
  2. TRASYLOL [Suspect]
     Indication: POST PROCEDURAL HAEMORRHAGE
     Dosage: 200 ML IV PRN
     Route: 042
     Dates: start: 20060512
  3. TRASYLOL [Suspect]
     Indication: PROPHYLAXIS
     Dosage: 200 ML IV PRN
     Route: 042
     Dates: start: 20060512
  4. SUBLIMAZE PRESERVATIVE FREE [Concomitant]
  5. MUCOMYST [Concomitant]
  6. ALBUMINAR [Concomitant]
  7. TYLENOL (CAPLET) [Concomitant]
  8. ASPIRIN [Concomitant]
  9. PRECEDEX [Concomitant]
  10. HEPARIN [Concomitant]
  11. LIDOCAINE [Concomitant]
  12. MAGNESIUM SULFATE [Concomitant]
  13. VERSED [Concomitant]
  14. NITROGLYCERIN [Concomitant]
  15. NEO-SYNEPHRINE [Concomitant]
  16. PAPAVERINE [Concomitant]
  17. PROTAMINE SULFATE [Concomitant]
  18. DOBUTREX [Concomitant]
  19. DOPAMINE [Concomitant]
  20. NORCURAN [Concomitant]
  21. ACETYLCYSTEINE [Concomitant]
  22. ANGIOMAX [Concomitant]
  23. DEMEROL [Concomitant]
  24. HALDOL [Concomitant]
  25. TRANDATE [Concomitant]
  26. MILK OF MAGNESIA TAB [Concomitant]
  27. LASIX [Concomitant]
  28. FORONE [Concomitant]
  29. LACTATED RINGER'S [Concomitant]
  30. NORMAL SALINE [Concomitant]
  31. NOVOLIN INSULIN [Concomitant]
  32. VANCOMYCIN [Concomitant]
  33. SOLU-MEDROL [Concomitant]
  34. PEPCID [Concomitant]
  35. PLASMA-LYTE 56 AND DEXTROSE 5% IN PLASTIC CONTAINER [Concomitant]
  36. MANNITOL [Concomitant]
  37. METOPROLOL TARTRATE [Concomitant]
  38. MORPHINE [Concomitant]
  39. SULAR [Concomitant]
  40. ZOFRAN [Concomitant]
  41. PROTONIX [Concomitant]
  42. PROMETHAZINE [Concomitant]
  43. PROPOXYPHENE HYDROCHLORIDE [Concomitant]
  44. SODIUM BICARBONATE [Concomitant]
  45. TEMAZEPAM [Concomitant]
  46. ZOCOR [Concomitant]
  47. PREDNISONE [Concomitant]

REACTIONS (3)
  - CEREBROVASCULAR ACCIDENT [None]
  - HEMIPLEGIA [None]
  - POST PROCEDURAL COMPLICATION [None]
